FAERS Safety Report 4297452-7 (Version None)
Quarter: 2004Q1

REPORT INFORMATION
  Report Type: 
  Country: None (occurrence: None)
  Receive Date: 20040218
  Receipt Date: 20040211
  Transmission Date: 20041129
  Serious: Yes (Other)
  Sender: FDA-Public Use
  Company Number: DE-ROCHE-358763

PATIENT
  Age: 76 Year
  Sex: Male

DRUGS (1)
  1. PEG-INTERFERON ALFA 2A (RO 25-8310) [Suspect]
     Route: 058
     Dates: start: 20030925, end: 20040129

REACTIONS (1)
  - GENERAL PHYSICAL HEALTH DETERIORATION [None]
